FAERS Safety Report 8948283 (Version 2)
Quarter: 2012Q4

REPORT INFORMATION
  Report Type: 
  Country: GB (occurrence: GB)
  Receive Date: 20121206
  Receipt Date: 20121227
  Transmission Date: 20130627
  Serious: Yes (Hospitalization, Other)
  Sender: FDA-Public Use
  Company Number: PHFR2012GB006272

PATIENT
  Age: 39 Year
  Sex: Male

DRUGS (4)
  1. CLOZARIL [Suspect]
     Indication: SCHIZOPHRENIA
     Dosage: 600 mg, UNK
     Dates: start: 20100715
  2. CLOZARIL [Suspect]
     Dosage: 125 mg, BID
  3. CLOZARIL [Suspect]
     Dosage: 250 mg
     Route: 048
  4. CITALOPRAM [Concomitant]
     Indication: DEPRESSION
     Dosage: 20 mg
     Route: 048

REACTIONS (2)
  - Incorrect dose administered [Recovered/Resolved]
  - Sedation [Unknown]
